FAERS Safety Report 20639991 (Version 1)
Quarter: 2022Q1

REPORT INFORMATION
  Report Type: Spontaneous
  Country: US (occurrence: US)
  Receive Date: 20220326
  Receipt Date: 20220326
  Transmission Date: 20220423
  Serious: No
  Sender: FDA-Public Use
  Company Number: US-SA-SAC20220321000209

PATIENT
  Age: 52 Year
  Sex: Female

DRUGS (17)
  1. DUPIXENT [Suspect]
     Active Substance: DUPILUMAB
     Indication: Dermatitis atopic
     Dosage: 300 MG, QOW
     Route: 058
     Dates: start: 20211127
  2. AMLODIPINE [Concomitant]
     Active Substance: AMLODIPINE BESYLATE
  3. CLOBETASOL [Concomitant]
     Active Substance: CLOBETASOL
  4. DULERA [Concomitant]
     Active Substance: FORMOTEROL FUMARATE DIHYDRATE\MOMETASONE FUROATE
     Dosage: 100-5MCG
  5. LAMICTAL [Concomitant]
     Active Substance: LAMOTRIGINE
  6. LAMOTRIGINE [Concomitant]
     Active Substance: LAMOTRIGINE
  7. LATUDA [Concomitant]
     Active Substance: LURASIDONE HYDROCHLORIDE
  8. LUNESTA [Concomitant]
     Active Substance: ESZOPICLONE
  9. MONTELUKAST SODIUM [Concomitant]
     Active Substance: MONTELUKAST SODIUM
  10. ROPINIROLE [Concomitant]
     Active Substance: ROPINIROLE
  11. ROSUVASTATIN [Concomitant]
     Active Substance: ROSUVASTATIN
  12. SERTRALINE [Concomitant]
     Active Substance: SERTRALINE HYDROCHLORIDE
  13. TREMFYA [Concomitant]
     Active Substance: GUSELKUMAB
  14. ZOLPIDEM [Concomitant]
     Active Substance: ZOLPIDEM TARTRATE
  15. TRIAMCINOLONA [TRIAMCINOLONE ACETONIDE] [Concomitant]
  16. SINGULAIR [Concomitant]
     Active Substance: MONTELUKAST SODIUM
  17. ALBUTEROL SULFATE [Concomitant]
     Active Substance: ALBUTEROL SULFATE

REACTIONS (3)
  - Infection [Not Recovered/Not Resolved]
  - Illness [Not Recovered/Not Resolved]
  - Dermatitis atopic [Not Recovered/Not Resolved]
